FAERS Safety Report 15132167 (Version 1)
Quarter: 2018Q3

REPORT INFORMATION
  Report Type: Spontaneous
  Country: US (occurrence: US)
  Receive Date: 20180615
  Receipt Date: 20180615
  Transmission Date: 20181010
  Serious: Yes (Death)
  Sender: FDA-Public Use
  Company Number: None

PATIENT
  Age: 45 Year
  Sex: Female

DRUGS (1)
  1. NUCALA [Suspect]
     Active Substance: MEPOLIZUMAB
     Indication: RESPIRATORY DISORDER
     Route: 058
     Dates: start: 20170717, end: 20180513

REACTIONS (1)
  - Death [None]

NARRATIVE: CASE EVENT DATE: 2018
